FAERS Safety Report 13575895 (Version 1)
Quarter: 2017Q2

REPORT INFORMATION
  Report Type: Spontaneous
  Country: US (occurrence: US)
  Receive Date: 20170523
  Receipt Date: 20170523
  Transmission Date: 20170830
  Serious: No
  Sender: FDA-Public Use
  Company Number: None

PATIENT
  Age: 47 Year
  Sex: Female
  Weight: 87.75 kg

DRUGS (5)
  1. MELOXICAM. [Concomitant]
     Active Substance: MELOXICAM
  2. FOOT PEEL (GLYCOLIC ACID\SALICYLIC ACID) [Suspect]
     Active Substance: GLYCOLIC ACID\SALICYLIC ACID
     Indication: HYPERKERATOSIS
     Dosage: QUANTITY:1 PATCH(ES);OTHER FREQUENCY:ONE TIME AS NEEDED;?
     Route: 062
     Dates: start: 20170510
  3. TRAMADOL. [Concomitant]
     Active Substance: TRAMADOL
  4. SINGULAIR [Concomitant]
     Active Substance: MONTELUKAST SODIUM
  5. PROAIR HFA [Concomitant]
     Active Substance: ALBUTEROL SULFATE

REACTIONS (2)
  - Rash [None]
  - Product formulation issue [None]

NARRATIVE: CASE EVENT DATE: 20170523
